FAERS Safety Report 6542569-7 (Version None)
Quarter: 2010Q1

REPORT INFORMATION
  Report Type: 
  Country: None (occurrence: None)
  Receive Date: 20100119
  Receipt Date: 20100106
  Transmission Date: 20100710
  Serious: Yes (Other)
  Sender: FDA-Public Use
  Company Number: GB-WATSON-2010-00527

PATIENT

DRUGS (4)
  1. RISPERIDONE [Suspect]
     Indication: DRUG USE FOR UNKNOWN INDICATION
     Dosage: 1.5 MG, UNK
     Route: 048
     Dates: start: 20051022, end: 20060704
  2. CONCERTA [Suspect]
     Indication: ATTENTION DEFICIT/HYPERACTIVITY DISORDER
     Dosage: 18 MG, DAILY
     Route: 048
     Dates: start: 20060208, end: 20060208
  3. CONCERTA [Suspect]
     Dosage: 18 MG, DAILY
     Dates: start: 20060710, end: 20060710
  4. MELATONIN [Concomitant]
     Indication: DRUG USE FOR UNKNOWN INDICATION
     Dosage: 3 MG, TID
     Dates: start: 20060705

REACTIONS (11)
  - AGGRESSION [None]
  - CRYING [None]
  - DYSKINESIA [None]
  - DYSTONIA [None]
  - FATIGUE [None]
  - HEADACHE [None]
  - MUSCLE SPASTICITY [None]
  - PSYCHOMOTOR HYPERACTIVITY [None]
  - SWOLLEN TONGUE [None]
  - TIC [None]
  - VOMITING [None]
